FAERS Safety Report 5919427-1 (Version None)
Quarter: 2008Q4

REPORT INFORMATION
  Report Type: 
  Country: None (occurrence: None)
  Receive Date: 20081015
  Receipt Date: 20081007
  Transmission Date: 20090506
  Serious: Yes (Hospitalization)
  Sender: FDA-Public Use
  Company Number: SE-ASTRAZENECA-2008SE04467

PATIENT
  Age: 29931 Day
  Sex: Female

DRUGS (2)
  1. XYLOCAINE [Suspect]
     Route: 014
     Dates: start: 20080327, end: 20080904
  2. ARTZ DISPO [Suspect]
     Indication: OSTEOARTHRITIS
     Dosage: 25MG*2
     Route: 014
     Dates: start: 20080327, end: 20080904

REACTIONS (1)
  - ARTHRITIS BACTERIAL [None]
